FAERS Safety Report 20198356 (Version 1)
Quarter: 2021Q4

REPORT INFORMATION
  Report Type: Spontaneous
  Country: GB (occurrence: GB)
  Receive Date: 20211217
  Receipt Date: 20211217
  Transmission Date: 20220303
  Serious: Yes (Other)
  Sender: FDA-Public Use
  Company Number: GB-002147023-NVSC2021GB274806

PATIENT
  Age: 51 Year
  Sex: Male

DRUGS (2)
  1. HYDROXYUREA [Suspect]
     Active Substance: HYDROXYUREA
     Route: 065
     Dates: start: 201903
  2. DASATINIB [Suspect]
     Active Substance: DASATINIB
     Route: 065
     Dates: start: 201811, end: 201903

REACTIONS (2)
  - Depression [Unknown]
  - Headache [Unknown]
